FAERS Safety Report 6672445-0 (Version None)
Quarter: 2010Q2

REPORT INFORMATION
  Report Type: 
  Country: None (occurrence: None)
  Receive Date: 20100408
  Receipt Date: 20100325
  Transmission Date: 20101027
  Serious: Yes (Other)
  Sender: FDA-Public Use
  Company Number: FR-RANBAXY-2010RR-31057

PATIENT
  Age: 62 Year
  Sex: Female

DRUGS (14)
  1. NEVIRAPINE [Suspect]
     Indication: HIV INFECTION
     Dosage: 400 MG, UNK
  2. LAMIVUDINE [Suspect]
     Indication: HIV INFECTION
     Dosage: 300 MG, UNK
  3. ZIDOVUDINE [Suspect]
     Indication: HIV INFECTION
     Dosage: 600 MG, UNK
  4. ENOXAPARIN SODIUM [Suspect]
  5. FLUINDIONE [Suspect]
     Dosage: 40 MG, UNK
  6. WARFARIN SODIUM [Suspect]
     Dosage: 6 MG, UNK
  7. OMEPRAZOLE [Concomitant]
     Dosage: 20 MG, UNK
  8. GABAPENTIN [Concomitant]
     Dosage: 300 MG, UNK
  9. RILMENIDINE [Concomitant]
     Dosage: 1 MG, UNK
  10. NICARDIPINE HYDROCHLORIDE [Concomitant]
     Dosage: 50 MG, UNK
  11. PERINDOPRIL ERBUMINE [Concomitant]
     Dosage: 4 MG, UNK
  12. ATENOLOL [Concomitant]
     Dosage: 100 MG, UNK
  13. ALPRAZOLAM [Concomitant]
     Dosage: 0.25 MG, UNK
  14. TINZAPARIN SODIUM [Concomitant]

REACTIONS (3)
  - DRUG INEFFECTIVE [None]
  - DRUG INTERACTION [None]
  - DRUG LEVEL DECREASED [None]
